FAERS Safety Report 4777195-3 (Version None)
Quarter: 2005Q3

REPORT INFORMATION
  Report Type: 
  Country: None (occurrence: None)
  Receive Date: 20050923
  Receipt Date: 20050907
  Transmission Date: 20060218
  Serious: Yes (Death, Hospitalization, Other)
  Sender: FDA-Public Use
  Company Number: PHBS2005JP13125

PATIENT
  Age: 63 Year
  Sex: Female

DRUGS (1)
  1. GLEEVEC [Suspect]
     Indication: GASTROINTESTINAL STROMAL TUMOUR
     Route: 048

REACTIONS (8)
  - FAECES DISCOLOURED [None]
  - GASTRIC VARICES [None]
  - GASTRIC VARICES HAEMORRHAGE [None]
  - HAEMATEMESIS [None]
  - MULTI-ORGAN FAILURE [None]
  - PORTAL HYPERTENSION [None]
  - RENAL IMPAIRMENT [None]
  - SCLEROTHERAPY [None]
